FAERS Safety Report 8008078-3 (Version None)
Quarter: 2011Q4

REPORT INFORMATION
  Report Type: 
  Country: None (occurrence: None)
  Receive Date: 20111227
  Receipt Date: 20111220
  Transmission Date: 20120403
  Serious: Yes (Life-Threatening, Hospitalization, Other)
  Sender: FDA-Public Use
  Company Number: PHHY2011JP103169

PATIENT
  Age: 72 Year
  Sex: Male

DRUGS (12)
  1. TEGRETOL [Suspect]
     Indication: CENTRAL PAIN SYNDROME
     Dosage: 200 MG, UNK
     Route: 048
     Dates: start: 20110829, end: 20110907
  2. TEGRETOL [Suspect]
     Dosage: 200 MG, UNK
     Dates: start: 20110916, end: 20111121
  3. FAMOTIDINE [Concomitant]
     Indication: GASTRITIS
     Dosage: 10 MG, UNK
     Route: 048
     Dates: start: 20110714
  4. OLMESARTAN MEDOXOMIL [Concomitant]
     Indication: HYPERTENSION
     Dosage: 5 MG, UNK
     Route: 048
     Dates: start: 20110714
  5. CRESTOR [Suspect]
     Indication: DYSLIPIDAEMIA
     Dosage: 2.5 MG, UNK
     Route: 048
     Dates: end: 20111112
  6. ROHYPNOL [Concomitant]
     Dosage: 0.5 MG, UNK
     Route: 048
     Dates: start: 20110720
  7. MAGMITT [Concomitant]
     Indication: CONSTIPATION
     Dosage: 990 MG, UNK
     Route: 048
     Dates: start: 20110721
  8. TEGRETOL [Suspect]
     Dosage: 400 MG, UNK
     Dates: start: 20110908, end: 20110915
  9. SODIUM PICOSULFATE [Concomitant]
     Indication: CONSTIPATION
     Dosage: 10 GTT, UNK
     Route: 048
     Dates: start: 20110722
  10. AMLODIPINE [Concomitant]
     Indication: HYPERTENSION
     Dosage: 5 MG, UNK
     Route: 048
     Dates: start: 20110714
  11. HACHIMIJIO-GAN [Concomitant]
     Indication: POLLAKIURIA
     Dosage: 7.5 MG, UNK
     Route: 048
     Dates: start: 20110804
  12. ROHYPNOL [Concomitant]
     Indication: INSOMNIA
     Dosage: 1 MG, UNK

REACTIONS (8)
  - STOMATITIS [None]
  - RASH GENERALISED [None]
  - DRUG INEFFECTIVE [None]
  - ERYTHEMA [None]
  - DRUG INTERACTION [None]
  - DRUG ERUPTION [None]
  - STEVENS-JOHNSON SYNDROME [None]
  - SOMNOLENCE [None]
